FAERS Safety Report 4937477-9 (Version None)
Quarter: 2006Q1

REPORT INFORMATION
  Report Type: 
  Country: None (occurrence: None)
  Receive Date: 20060309
  Receipt Date: 20060302
  Transmission Date: 20060701
  Serious: Yes (Hospitalization)
  Sender: FDA-Public Use
  Company Number: CA-AVENTIS-200611333EU

PATIENT
  Age: 68 Year
  Sex: Male

DRUGS (5)
  1. LOVENOX [Suspect]
     Indication: DEEP VEIN THROMBOSIS
     Route: 058
     Dates: start: 20060216, end: 20060217
  2. LIPITOR [Concomitant]
     Indication: BLOOD CHOLESTEROL INCREASED
     Route: 048
  3. NEXIUM [Concomitant]
     Route: 048
  4. ACETYLSALICYLIC ACID SRT [Concomitant]
     Route: 048
  5. ANTIGLAUCOMA PREPARATIONS AND MIOTICS [Concomitant]
     Indication: GLAUCOMA
     Route: 061

REACTIONS (6)
  - BLOOD PRESSURE INCREASED [None]
  - CHEST DISCOMFORT [None]
  - HEART RATE INCREASED [None]
  - INJECTION SITE BRUISING [None]
  - INJECTION SITE PAIN [None]
  - INJECTION SITE REACTION [None]
